FAERS Safety Report 4922072-8 (Version None)
Quarter: 2006Q1

REPORT INFORMATION
  Report Type: 
  Country: None (occurrence: None)
  Receive Date: 20060222
  Receipt Date: 20060222
  Transmission Date: 20060701
  Serious: Yes (Hospitalization)
  Sender: FDA-Public Use
  Company Number: None

PATIENT
  Age: 88 Year
  Sex: Female

DRUGS (18)
  1. HUMULIN 70/30 [Suspect]
     Indication: DIABETES MELLITUS NON-INSULIN-DEPENDENT
     Dosage: 32 UNITS SQ DAILY  CHRONIC
     Route: 058
  2. ASPIRIN [Concomitant]
  3. TOPROL [Concomitant]
  4. DIOVAN [Concomitant]
  5. NORVASC [Concomitant]
  6. QUININE [Concomitant]
  7. ZAROXOLYN [Concomitant]
  8. POTASSIUM CHLORIDE [Concomitant]
  9. BUMEX [Concomitant]
  10. SYNTHROID [Concomitant]
  11. DURAGESIC-100 [Concomitant]
  12. HEMOCYTE [Concomitant]
  13. ERYTHROPOETIN [Concomitant]
  14. FOSAMAX [Concomitant]
  15. NAMENDA [Concomitant]
  16. LEXAPRO [Concomitant]
  17. COLACE [Concomitant]
  18. MULTIVIT [Concomitant]

REACTIONS (4)
  - CONVULSION [None]
  - HYPOGLYCAEMIA [None]
  - ORAL INTAKE REDUCED [None]
  - URINARY TRACT INFECTION [None]
